FAERS Safety Report 6564543-7 (Version None)
Quarter: 2010Q1

REPORT INFORMATION
  Report Type: 
  Country: None (occurrence: None)
  Receive Date: 20100201
  Receipt Date: 20100118
  Transmission Date: 20100710
  Serious: Yes (Other)
  Sender: FDA-Public Use
  Company Number: PHEH2008US03143

PATIENT
  Sex: Male

DRUGS (5)
  1. ZOMETA [Suspect]
     Dosage: 4MG
     Dates: start: 20050715, end: 20070103
  2. LUPRON [Concomitant]
  3. CASODEX [Concomitant]
  4. DECADRON #1 [Concomitant]
     Dosage: 10MG
     Dates: start: 20060207
  5. ZOFRAN [Concomitant]
     Dosage: 4MG
     Route: 040
     Dates: start: 20061106

REACTIONS (26)
  - ANXIETY [None]
  - BONE FORMATION INCREASED [None]
  - BONE PAIN [None]
  - DEAFNESS [None]
  - DIVERTICULUM INTESTINAL [None]
  - EMOTIONAL DISTRESS [None]
  - FATIGUE [None]
  - GYNAECOMASTIA [None]
  - HEADACHE [None]
  - HERPES ZOSTER [None]
  - INFECTION [None]
  - INJURY [None]
  - METASTASES TO BONE [None]
  - MICTURITION URGENCY [None]
  - NEPHROLITHIASIS [None]
  - NOCTURIA [None]
  - OSTEOARTHRITIS [None]
  - OSTEONECROSIS [None]
  - PAIN [None]
  - PARAESTHESIA [None]
  - PERIPHERAL VASCULAR DISORDER [None]
  - PHYSICAL DISABILITY [None]
  - PROSTATIC SPECIFIC ANTIGEN INCREASED [None]
  - SCAR [None]
  - URINARY TRACT INFECTION [None]
  - URINE ABNORMALITY [None]
